FAERS Safety Report 5228984-2 (Version None)
Quarter: 2007Q1

REPORT INFORMATION
  Report Type: 
  Country: None (occurrence: None)
  Receive Date: 20070205
  Receipt Date: 20070123
  Transmission Date: 20070707
  Serious: Yes (Other)
  Sender: FDA-Public Use
  Company Number: GB-ELI_LILLY_AND_COMPANY-GB200701004368

PATIENT
  Age: 69 Year
  Sex: Female
  Weight: 63.64 kg

DRUGS (7)
  1. CYMBALTA [Suspect]
     Indication: DEPRESSION
     Dosage: 90 MG, DAILY (1/D)
     Route: 048
     Dates: start: 20060206, end: 20061211
  2. AMOXICILLIN [Concomitant]
     Dates: start: 20061116
  3. ASPIRIN [Concomitant]
     Dosage: 1 D/F, DAILY (1/D)
     Dates: start: 20041119
  4. LAMOTRIGINE [Concomitant]
     Dosage: 1 D/F, 2/D
     Dates: end: 20061208
  5. LEVOTHYROXINE SODIUM [Concomitant]
     Dosage: UNK, DAILY (1/D)
     Dates: start: 20060424
  6. OMEPRAZOLE [Concomitant]
     Dosage: 1 D/F, DAILY (1/D)
     Dates: start: 20040505
  7. SODIUM PICOSULFATE [Concomitant]
     Dates: start: 19940824

REACTIONS (1)
  - RENAL IMPAIRMENT [None]
